FAERS Safety Report 5822548-5 (Version None)
Quarter: 2008Q3

REPORT INFORMATION
  Report Type: 
  Country: None (occurrence: None)
  Receive Date: 20080725
  Receipt Date: 20080116
  Transmission Date: 20090109
  Serious: No
  Sender: FDA-Public Use
  Company Number: US-AMGEN-KDL261428

PATIENT
  Age: 75 Year
  Sex: Female

DRUGS (1)
  1. PROCRIT [Suspect]
     Indication: ANAEMIA
     Route: 058
     Dates: end: 20070101

REACTIONS (3)
  - PAIN [None]
  - PARAESTHESIA [None]
  - PYREXIA [None]
